FAERS Safety Report 11201789 (Version 1)
Quarter: 2015Q2

REPORT INFORMATION
  Report Type: Spontaneous
  Country: US (occurrence: None)
  Receive Date: 20150618
  Receipt Date: 20150618
  Transmission Date: 20150821
  Serious: Yes (Other)
  Sender: FDA-Public Use
  Company Number: None

PATIENT
  Sex: Male

DRUGS (2)
  1. ZYTIGA [Suspect]
     Active Substance: ABIRATERONE ACETATE
     Indication: ILL-DEFINED DISORDER
     Dosage: ZYTIGA 1000 MG DAILY PO
     Route: 048
     Dates: start: 20150606
  2. PREDNISONE 5MG [Suspect]
     Active Substance: PREDNISONE
     Indication: ILL-DEFINED DISORDER
     Dosage: PREDNISONE 5MG BID PO
     Route: 048
     Dates: start: 20150606

REACTIONS (3)
  - Stomatitis [None]
  - Infection [None]
  - Dysgeusia [None]
